FAERS Safety Report 9509570 (Version 1)
Quarter: 2013Q3

REPORT INFORMATION
  Report Type: Spontaneous
  Country: US (occurrence: US)
  Receive Date: 20130909
  Receipt Date: 20130909
  Transmission Date: 20140515
  Serious: No
  Sender: FDA-Public Use
  Company Number: US-BRISTOL-MYERS SQUIBB COMPANY-17223231

PATIENT
  Age: 26 Year
  Sex: Male

DRUGS (3)
  1. ABILIFY [Suspect]
     Dosage: AT BED TIME
     Dates: start: 20121211
  2. PAROXETINE HCL [Suspect]
  3. ANTABUSE [Suspect]

REACTIONS (4)
  - Trismus [Unknown]
  - Muscle spasms [Unknown]
  - Dysphagia [Unknown]
  - Muscle twitching [Unknown]
